FAERS Safety Report 9481583 (Version 2)
Quarter: 2013Q3

REPORT INFORMATION
  Report Type: Spontaneous
  Country: US (occurrence: US)
  Receive Date: 20130828
  Receipt Date: 20130828
  Transmission Date: 20140515
  Serious: Yes (Other)
  Sender: FDA-Public Use
  Company Number: US-AMGEN-KDL111712

PATIENT
  Age: 48 Year
  Sex: Female

DRUGS (15)
  1. ENBREL [Suspect]
     Indication: RHEUMATOID ARTHRITIS
     Dosage: 25 MG, 2 TIMES/WK
     Route: 058
     Dates: start: 200402, end: 200407
  2. AMITRIPTYLINE [Concomitant]
     Dosage: 100 MG, QD
  3. ATENOLOL [Concomitant]
  4. FENTANYL [Concomitant]
     Dosage: 75 MG, QOD
     Route: 062
  5. ESCITALOPRAM [Concomitant]
  6. LEVOTHYROXINE SODIUM [Concomitant]
  7. HYDROCHLOROTHIAZIDE [Concomitant]
  8. ACETAMINOPHEN W/OXYCODONE [Concomitant]
     Dosage: UNK UNK, PRN
  9. ESTROGENS CONJUGATED [Concomitant]
  10. QUININE [Concomitant]
  11. MELOXICAM [Concomitant]
  12. TRAZODONE [Concomitant]
  13. CALCIUM [Concomitant]
  14. MULTIVITAMINS [Concomitant]
  15. BUDESONIDE [Concomitant]

REACTIONS (11)
  - Multiple sclerosis [Not Recovered/Not Resolved]
  - Sjogren^s syndrome [Not Recovered/Not Resolved]
  - Optic neuritis [Unknown]
  - Gait disturbance [Not Recovered/Not Resolved]
  - Fall [Not Recovered/Not Resolved]
  - Clumsiness [Not Recovered/Not Resolved]
  - Nervous system disorder [Not Recovered/Not Resolved]
  - Spinal disorder [Not Recovered/Not Resolved]
  - Muscle twitching [Not Recovered/Not Resolved]
  - Hypoaesthesia [Not Recovered/Not Resolved]
  - Balance disorder [Not Recovered/Not Resolved]
